FAERS Safety Report 6262202-1 (Version None)
Quarter: 2009Q3

REPORT INFORMATION
  Report Type: 
  Country: None (occurrence: None)
  Receive Date: 20090708
  Receipt Date: 20090708
  Transmission Date: 20100115
  Serious: Yes (Disabling, Other)
  Sender: FDA-Public Use
  Company Number: None

PATIENT
  Age: 53 Year
  Sex: Female
  Weight: 77.1115 kg

DRUGS (1)
  1. ZICAM NASAL GEL ZINCUM GLUCONICUM 2X MATRIXX [Suspect]
     Indication: NASOPHARYNGITIS
     Dosage: ONE PUMP 3X DAILY NASAL
     Route: 045
     Dates: start: 20090325, end: 20090330

REACTIONS (2)
  - AGEUSIA [None]
  - ANOSMIA [None]
